FAERS Safety Report 9085182 (Version 2)
Quarter: 2013Q1

REPORT INFORMATION
  Report Type: Spontaneous
  Country: US (occurrence: US)
  Receive Date: 20130131
  Receipt Date: 20130211
  Transmission Date: 20140127
  Serious: No
  Sender: FDA-Public Use
  Company Number: US-PFIZER INC-2013032565

PATIENT
  Age: 32 Year
  Sex: Male
  Weight: 82.09 kg

DRUGS (1)
  1. PROTONIX [Suspect]
     Indication: GASTROOESOPHAGEAL REFLUX DISEASE
     Dosage: 40MG THREE TO FOUR TIMES A DAY
     Route: 048
     Dates: start: 201212

REACTIONS (2)
  - Drug screen false positive [Unknown]
  - Inappropriate schedule of drug administration [Unknown]
